FAERS Safety Report 7538040-6 (Version None)
Quarter: 2011Q2

REPORT INFORMATION
  Report Type: 
  Country: None (occurrence: None)
  Receive Date: 20110609
  Receipt Date: 20110603
  Transmission Date: 20111010
  Serious: Yes (Death, Hospitalization)
  Sender: FDA-Public Use
  Company Number: PHHY2011BR16554

PATIENT
  Sex: Female

DRUGS (2)
  1. EXELON [Suspect]
     Indication: DEMENTIA ALZHEIMER'S TYPE
     Dosage: 27MG/15CM^2
     Route: 062
  2. TRILEPTAL [Suspect]
     Indication: EPILEPSY
     Dosage: 600 MG, UNK
     Route: 048

REACTIONS (1)
  - DEMENTIA [None]
